FAERS Safety Report 19244656 (Version 2)
Quarter: 2021Q2

REPORT INFORMATION
  Report Type: Spontaneous
  Country: CN (occurrence: CN)
  Receive Date: 20210511
  Receipt Date: 20210524
  Transmission Date: 20210717
  Serious: Yes (Hospitalization, Other)
  Sender: FDA-Public Use
  Company Number: CN-SA-2021SA147381

PATIENT
  Age: 65 Year
  Sex: Male
  Weight: 70 kg

DRUGS (10)
  1. LANTUS SOLOSTAR [Suspect]
     Active Substance: INSULIN GLARGINE
     Dosage: UNK
     Route: 065
     Dates: start: 202104
  2. HUMALOG [Concomitant]
     Active Substance: INSULIN LISPRO
     Dosage: 6IU?6IU?8IU/AFTER MEALS/IH
     Route: 065
  3. LANTUS SOLOSTAR [Suspect]
     Active Substance: INSULIN GLARGINE
     Indication: DIABETES MELLITUS MANAGEMENT
     Dosage: 18 IU, QD
     Route: 065
     Dates: start: 2010, end: 2012
  4. HUMALOG [Concomitant]
     Active Substance: INSULIN LISPRO
     Dosage: 4?5?6 IU/AFTER MEALS
     Route: 065
  5. LANTUS SOLOSTAR [Suspect]
     Active Substance: INSULIN GLARGINE
     Dosage: 7 IU, QD
     Route: 065
     Dates: start: 2012
  6. PREMIXED INSULIN [Suspect]
     Active Substance: INSULIN NOS
     Dosage: UNK
     Route: 065
  7. HUMALOG [Concomitant]
     Active Substance: INSULIN LISPRO
     Dosage: 4?4?4 IU/AFTER THREE MEALS
     Route: 065
     Dates: start: 2012
  8. MIRTAZAPINE. [Concomitant]
     Active Substance: MIRTAZAPINE
     Dosage: 1 DF, QD
     Route: 065
  9. INSULIN GLULISINE [Concomitant]
     Active Substance: INSULIN GLULISINE
     Dosage: 6?6?6IU/AFTER THREE MEALS/IH
     Route: 065
  10. LANTUS SOLOSTAR [Suspect]
     Active Substance: INSULIN GLARGINE
     Dosage: 12 IU, QD
     Route: 065
     Dates: start: 201207, end: 2012

REACTIONS (14)
  - Eye disorder [Unknown]
  - Stress [Unknown]
  - Injection site discomfort [Unknown]
  - Asthenia [Unknown]
  - Intraocular pressure increased [Unknown]
  - Peripheral coldness [Unknown]
  - Tension [Unknown]
  - Hyperglycaemia [Unknown]
  - Metamorphopsia [Unknown]
  - Retinal haemorrhage [Unknown]
  - Hypoglycaemia [Unknown]
  - Glycosylated haemoglobin decreased [Unknown]
  - Weight decreased [Unknown]
  - Depression [Unknown]

NARRATIVE: CASE EVENT DATE: 2011
